APPROVED DRUG PRODUCT: CHOLOVUE
Active Ingredient: IODOXAMATE MEGLUMINE
Strength: 40.3%
Dosage Form/Route: INJECTABLE;INJECTION
Application: N018076 | Product #001
Applicant: BRACCO DIAGNOSTICS INC
Approved: Approved Prior to Jan 1, 1982 | RLD: No | RS: No | Type: DISCN